FAERS Safety Report 7208285-3 (Version None)
Quarter: 2011Q1

REPORT INFORMATION
  Report Type: 
  Country: None (occurrence: None)
  Receive Date: 20110104
  Receipt Date: 20101227
  Transmission Date: 20110831
  Serious: Yes (Hospitalization, Other)
  Sender: FDA-Public Use
  Company Number: BR-PFIZER INC-2010179894

PATIENT
  Age: 50 Year
  Sex: Female
  Weight: 81 kg

DRUGS (2)
  1. OMEPRAZOLE [Concomitant]
     Dosage: UNK
     Dates: start: 20090101
  2. LIPITOR [Suspect]
     Dosage: 20 MG, 1X/DAY
     Route: 048
     Dates: start: 20101105, end: 20101201

REACTIONS (3)
  - HYPERSENSITIVITY [None]
  - ASTHMA [None]
  - RASH [None]
